FAERS Safety Report 11374306 (Version 13)
Quarter: 2017Q1

REPORT INFORMATION
  Report Type: Report from Study
  Country: RU (occurrence: RU)
  Receive Date: 20150812
  Receipt Date: 20170222
  Transmission Date: 20170428
  Serious: Yes (Hospitalization, Disabling)
  Sender: FDA-Public Use
  Company Number: RU-AMGEN-RUSCT2015081825

PATIENT
  Age: 54 Year
  Sex: Male
  Weight: 134 kg

DRUGS (5)
  1. CARFILZOMIB [Suspect]
     Active Substance: CARFILZOMIB
     Indication: SMALL CELL LUNG CANCER
     Dosage: 44 MG, PER CHEMO REGIM
     Route: 065
     Dates: start: 20150708, end: 20150805
  2. CARFILZOMIB [Suspect]
     Active Substance: CARFILZOMIB
     Dosage: 99 MG, PER CHEMO REGIM
     Route: 065
  3. CARBOPLATIN. [Suspect]
     Active Substance: CARBOPLATIN
     Indication: SMALL CELL LUNG CANCER
     Dosage: 750 MG, PER CHEMO REGIM
     Route: 065
     Dates: start: 20150707
  4. ETOPOSIDE. [Suspect]
     Active Substance: ETOPOSIDE
     Indication: SMALL CELL LUNG CANCER
     Dosage: 220 MG, PER CHEMO REGIM
     Route: 065
     Dates: start: 20150707
  5. DEXAMETHASONE. [Concomitant]
     Active Substance: DEXAMETHASONE
     Indication: SMALL CELL LUNG CANCER
     Dosage: 8 MG, UNK
     Route: 042
     Dates: start: 20150708

REACTIONS (1)
  - Peripheral artery thrombosis [Recovered/Resolved]

NARRATIVE: CASE EVENT DATE: 20150806
